FAERS Safety Report 9246536 (Version 4)
Quarter: 2013Q3

REPORT INFORMATION
  Report Type: Spontaneous
  Country: US (occurrence: US)
  Receive Date: 20130422
  Receipt Date: 20130827
  Transmission Date: 20140515
  Serious: Yes (Hospitalization, Other)
  Sender: FDA-Public Use
  Company Number: US-009507513-1304USA006780

PATIENT
  Sex: Female
  Weight: 68 kg

DRUGS (4)
  1. FOSAMAX [Suspect]
     Indication: OSTEOPOROSIS
     Dosage: 70 MG, QW
     Route: 048
  2. FOSAMAX [Suspect]
     Indication: OSTEOPENIA
  3. OS-CAL (CALCIUM CARBONATE) [Concomitant]
     Indication: OSTEOPOROSIS
  4. ALENDRONATE SODIUM [Suspect]
     Dosage: 70 MG, QW

REACTIONS (36)
  - Femur fracture [Unknown]
  - Intramedullary rod insertion [Unknown]
  - Hip surgery [Unknown]
  - Hip arthroplasty [Unknown]
  - Hip surgery [Unknown]
  - Wrist fracture [Unknown]
  - Closed fracture manipulation [Unknown]
  - Hip arthroplasty [Unknown]
  - Malignant melanoma [Unknown]
  - Skin graft [Unknown]
  - Skin neoplasm excision [Unknown]
  - Low turnover osteopathy [Unknown]
  - Chronic obstructive pulmonary disease [Not Recovered/Not Resolved]
  - Cardiac failure congestive [Unknown]
  - Osteoarthritis [Unknown]
  - Asthma [Unknown]
  - Lower extremity mass [Unknown]
  - Anxiety [Not Recovered/Not Resolved]
  - Hypertension [Not Recovered/Not Resolved]
  - Hypercholesterolaemia [Not Recovered/Not Resolved]
  - Cardiac disorder [Not Recovered/Not Resolved]
  - Adverse event [Not Recovered/Not Resolved]
  - Adverse event [Unknown]
  - Body height decreased [Unknown]
  - Rheumatoid arthritis [Unknown]
  - Calcium deficiency [Unknown]
  - Cardiac failure [Unknown]
  - Arthritis [Unknown]
  - Lymphadenectomy [Unknown]
  - Appendicectomy [Unknown]
  - Cystitis [Unknown]
  - Haemorrhagic anaemia [Unknown]
  - Back pain [Unknown]
  - Gastrooesophageal reflux disease [Not Recovered/Not Resolved]
  - Gastric ulcer [Unknown]
  - Back pain [Not Recovered/Not Resolved]
